FAERS Safety Report 20843422 (Version 1)
Quarter: 2022Q2

REPORT INFORMATION
  Report Type: Spontaneous
  Country: DE (occurrence: DE)
  Receive Date: 20220518
  Receipt Date: 20220518
  Transmission Date: 20220721
  Serious: Yes (Other)
  Sender: FDA-Public Use
  Company Number: DE-drreddys-SPO/GER/22/0149911

PATIENT
  Age: 66 Year
  Sex: Female

DRUGS (1)
  1. LETROZOLE [Suspect]
     Active Substance: LETROZOLE
     Indication: Breast cancer
     Route: 048
     Dates: start: 201906

REACTIONS (2)
  - Retinal pigment epithelial tear [Not Recovered/Not Resolved]
  - Visual impairment [Unknown]
